FAERS Safety Report 15620353 (Version 4)
Quarter: 2019Q3

REPORT INFORMATION
  Report Type: Other
  Country: ES (occurrence: ES)
  Receive Date: 20181115
  Receipt Date: 20190910
  Transmission Date: 20191004
  Serious: Yes (Hospitalization, Other)
  Sender: FDA-Public Use
  Company Number: ES-APOTEX-2018AP024433

PATIENT
  Age: 87 Year
  Sex: Male
  Weight: 87 kg

DRUGS (38)
  1. ACYCLOVIR                          /00587301/ [Suspect]
     Active Substance: ACYCLOVIR
     Indication: ERYTHRODERMIC PSORIASIS
     Dosage: 400 MG, Q8H, EVERY 8 HOURLY
     Route: 042
     Dates: start: 20170810
  2. PARACETAMOL [Concomitant]
     Active Substance: ACETAMINOPHEN
     Indication: PRODUCT USED FOR UNKNOWN INDICATION
     Dosage: 650 MG, Q12H
     Route: 065
  3. DIPROGENTA [Concomitant]
     Active Substance: BETAMETHASONE DIPROPIONATE\GENTAMICIN SULFATE
     Indication: PRODUCT USED FOR UNKNOWN INDICATION
     Dosage: 1 DF, Q.12H
     Route: 061
  4. ACITRETIN. [Concomitant]
     Active Substance: ACITRETIN
     Indication: PRODUCT USED FOR UNKNOWN INDICATION
     Dosage: 25 MG, QD
     Route: 065
     Dates: start: 20170728
  5. SPIRONOLACTONE. [Concomitant]
     Active Substance: SPIRONOLACTONE
     Indication: PRODUCT USED FOR UNKNOWN INDICATION
     Dosage: UNSPECIFIED, TOTAL 1200 MG ONCE A DAY
     Route: 065
     Dates: start: 20170802
  6. ACYCLOVIR                          /00587301/ [Suspect]
     Active Substance: ACYCLOVIR
     Dosage: 45 MG, UNK
     Route: 058
  7. CEFTRIAXONE. [Suspect]
     Active Substance: CEFTRIAXONE
     Indication: PRODUCT USED FOR UNKNOWN INDICATION
     Dosage: 500 MG, UNK
     Route: 030
     Dates: start: 20170801, end: 20170812
  8. NOLOTIL                            /00473101/ [Suspect]
     Active Substance: METAMIZOLE\PROPOXYPHENE
     Indication: PRODUCT USED FOR UNKNOWN INDICATION
     Dosage: UNK UNK, Q8H, EVERY 8 HOURLY
     Route: 042
     Dates: start: 201708
  9. JUNIPER OIL [Concomitant]
     Active Substance: HERBALS\JUNIPERUS COMMUNIS WHOLE
     Indication: PRODUCT USED FOR UNKNOWN INDICATION
     Dosage: FORM: UNSPECIFIED, BATHROOMS WITH JUNIPER OIL ONCE A DAY FOR 20 MINUTES.
     Route: 065
  10. FLUCONAZOLE. [Suspect]
     Active Substance: FLUCONAZOLE
     Indication: PRODUCT USED FOR UNKNOWN INDICATION
     Dosage: 200 MG, QD
     Route: 042
     Dates: start: 20170810
  11. STELARA [Suspect]
     Active Substance: USTEKINUMAB
     Indication: PSORIASIS
     Dosage: 45 MG, UNK
     Route: 058
     Dates: start: 20170803, end: 20170803
  12. NOLOTIL                            /00473101/ [Suspect]
     Active Substance: METAMIZOLE\PROPOXYPHENE
     Dosage: UNK, QD
     Route: 042
     Dates: start: 20170801
  13. BILAXTEN [Concomitant]
     Active Substance: BILASTINE
     Indication: PRODUCT USED FOR UNKNOWN INDICATION
     Dosage: 40 MG, QD
     Route: 065
     Dates: end: 20170726
  14. OMNIC OCAS [Concomitant]
     Active Substance: TAMSULOSIN HYDROCHLORIDE
     Indication: PRODUCT USED FOR UNKNOWN INDICATION
     Dosage: UNK UNK, QD
     Route: 065
  15. AUXINA A+E [Concomitant]
     Indication: PRODUCT USED FOR UNKNOWN INDICATION
     Dosage: UNK UNK, QD
     Route: 048
     Dates: start: 201704, end: 20170726
  16. ACYCLOVIR                          /00587301/ [Suspect]
     Active Substance: ACYCLOVIR
     Dosage: 1200 MG, QD
     Route: 042
  17. ALDACTONE [Concomitant]
     Active Substance: SPIRONOLACTONE
     Indication: PRODUCT USED FOR UNKNOWN INDICATION
     Dosage: 25 MG, QD
     Route: 065
     Dates: start: 20170802, end: 20170802
  18. STELARA [Suspect]
     Active Substance: USTEKINUMAB
     Indication: ERYTHRODERMIC PSORIASIS
  19. NEOTIGASON [Suspect]
     Active Substance: ACITRETIN
     Indication: ERYTHRODERMIC PSORIASIS
     Dosage: 25 MG, QD
     Route: 065
     Dates: start: 20170728, end: 20170728
  20. ENALAPRIL [Concomitant]
     Active Substance: ENALAPRIL
     Indication: PRODUCT USED FOR UNKNOWN INDICATION
     Dosage: 5 MG, QD
     Route: 065
  21. DIPROGENTA [Concomitant]
     Active Substance: BETAMETHASONE DIPROPIONATE\GENTAMICIN SULFATE
     Dosage: 1 DF, QD
     Route: 061
  22. LORATADINE. [Concomitant]
     Active Substance: LORATADINE
     Dosage: 30 UNK, UNK
     Route: 048
  23. ALLOPURINOL. [Suspect]
     Active Substance: ALLOPURINOL
     Indication: HYPERURICAEMIA
     Dosage: UNK
     Route: 065
     Dates: start: 20110101
  24. MONOLITUM [Concomitant]
     Active Substance: LANSOPRAZOLE
     Indication: PRODUCT USED FOR UNKNOWN INDICATION
     Dosage: 30 MG, QD
     Route: 065
     Dates: start: 20170401
  25. BRETARIS GENUAIR [Concomitant]
     Active Substance: ACLIDINIUM BROMIDE
     Indication: PRODUCT USED FOR UNKNOWN INDICATION
     Dosage: INHALATION
     Route: 055
  26. BRETARIS GENUAIR [Concomitant]
     Active Substance: ACLIDINIUM BROMIDE
     Dosage: UNK UNK, Q.12H
     Route: 065
  27. LORATADINE. [Concomitant]
     Active Substance: LORATADINE
     Indication: PRODUCT USED FOR UNKNOWN INDICATION
     Dosage: 10 MG, QD
     Route: 048
     Dates: start: 20170726
  28. SEGURIL [Concomitant]
     Active Substance: FUROSEMIDE
     Indication: PRODUCT USED FOR UNKNOWN INDICATION
     Dosage: DOSAGE FORM: UNSPECIFIED, 1.5 (60 MG/ DAY)
     Route: 065
     Dates: end: 20170802
  29. NEOTIGASON [Suspect]
     Active Substance: ACITRETIN
     Dosage: 50 MG, QD
     Route: 065
     Dates: start: 20170728, end: 20170728
  30. BILAXTEN [Concomitant]
     Active Substance: BILASTINE
     Dosage: 20 MG, QD
     Route: 065
     Dates: end: 20170726
  31. SALMETEROL [Concomitant]
     Active Substance: SALMETEROL
     Indication: PRODUCT USED FOR UNKNOWN INDICATION
     Dosage: UNSPECIFIED, 1 INHALATION
     Route: 055
  32. BETAMETHASONE W/CALCIPOTRIOL [Concomitant]
     Active Substance: BETAMETHASONE DIPROPIONATE\CALCIPOTRIENE HYDRATE
     Indication: PRODUCT USED FOR UNKNOWN INDICATION
     Dosage: UNK UNK, Q.12H
     Route: 065
     Dates: start: 201704
  33. DACORTIN [Concomitant]
     Active Substance: PREDNISONE
     Indication: PRODUCT USED FOR UNKNOWN INDICATION
     Dosage: 5 MG, QD
     Route: 065
     Dates: end: 20170801
  34. AZITHROMYCIN ANHYDROUS. [Concomitant]
     Active Substance: AZITHROMYCIN ANHYDROUS
     Indication: PRODUCT USED FOR UNKNOWN INDICATION
     Dosage: UNK
     Route: 065
     Dates: end: 20170812
  35. METAMIZOLE MAGNESIUM [Concomitant]
     Active Substance: METAMIZOLE MAGNESIUM
     Indication: PRODUCT USED FOR UNKNOWN INDICATION
     Dosage: 1200 MG, QD
     Route: 042
  36. ZYLORIC [Concomitant]
     Active Substance: ALLOPURINOL
     Indication: PRODUCT USED FOR UNKNOWN INDICATION
     Dosage: 100 MG, QD
     Route: 065
  37. EUCERIN                            /00021201/ [Concomitant]
     Active Substance: SALICYLIC ACID
     Indication: PRODUCT USED FOR UNKNOWN INDICATION
     Dosage: UNK
     Route: 065
  38. SIMVASTATIN. [Concomitant]
     Active Substance: SIMVASTATIN
     Indication: PRODUCT USED FOR UNKNOWN INDICATION
     Dosage: 20 MG, QD
     Route: 065

REACTIONS (3)
  - Oral candidiasis [Recovering/Resolving]
  - Fungal infection [Recovering/Resolving]
  - Toxic epidermal necrolysis [Recovered/Resolved]

NARRATIVE: CASE EVENT DATE: 2017
